FAERS Safety Report 21011298 (Version 2)
Quarter: 2022Q3

REPORT INFORMATION
  Report Type: Report from Study
  Country: FI (occurrence: FI)
  Receive Date: 20220627
  Receipt Date: 20220712
  Transmission Date: 20221026
  Serious: Yes (Life-Threatening, Hospitalization)
  Sender: FDA-Public Use
  Company Number: FI-BAYER-2018-114764

PATIENT
  Age: 76 Year
  Sex: Female
  Weight: 53 kg

DRUGS (11)
  1. COPANLISIB [Suspect]
     Active Substance: COPANLISIB
     Indication: Non-Hodgkin^s lymphoma recurrent
     Dosage: UNK
     Route: 042
     Dates: start: 20180606
  2. RITUXIMAB [Suspect]
     Active Substance: RITUXIMAB
     Indication: Non-Hodgkin^s lymphoma recurrent
     Dosage: 530 G, UNK
     Route: 042
     Dates: start: 20180606
  3. BENDAMUSTINE [Suspect]
     Active Substance: BENDAMUSTINE
     Indication: Non-Hodgkin^s lymphoma recurrent
     Dosage: 125 G, UNK
     Route: 042
     Dates: start: 20180606
  4. ASPIRIN [Concomitant]
     Active Substance: ASPIRIN
     Dosage: 100 G, UNK
     Route: 048
  5. CALCIUM\CHOLECALCIFEROL [Concomitant]
     Active Substance: CALCIUM\CHOLECALCIFEROL
     Dosage: 1 DF, BID
     Route: 048
  6. SULFAMETHOXAZOLE\TRIMETHOPRIM [Concomitant]
     Active Substance: SULFAMETHOXAZOLE\TRIMETHOPRIM
     Indication: Prophylaxis
     Dosage: 1 DF, UNK
     Route: 048
     Dates: start: 20180606
  7. DEXAMETHASON CF [DEXAMETHASONE] [Concomitant]
     Indication: Prophylaxis
     Dosage: 9 G, UNK
     Route: 048
     Dates: start: 20180606
  8. FUROSEMIDE [Concomitant]
     Active Substance: FUROSEMIDE
     Dosage: 20 G, UNK
     Route: 048
  9. SPIRONOLACTONE [Concomitant]
     Active Substance: SPIRONOLACTONE
     Dosage: 25 G, QD
     Route: 048
  10. AMITRIPTYLINE [Concomitant]
     Active Substance: AMITRIPTYLINE
     Dosage: 10 G, QD
     Route: 048
  11. TERIPARATIDE [Concomitant]
     Active Substance: TERIPARATIDE
     Dosage: 20 ?G, QD
     Route: 058

REACTIONS (1)
  - Hyperglycaemia [Recovered/Resolved]

NARRATIVE: CASE EVENT DATE: 20180606
